FAERS Safety Report 5945325-3 (Version None)
Quarter: 2008Q4

REPORT INFORMATION
  Report Type: 
  Country: None (occurrence: None)
  Receive Date: 20081107
  Receipt Date: 20081028
  Transmission Date: 20090506
  Serious: Yes (Death, Hospitalization, Other)
  Sender: FDA-Public Use
  Company Number: IN-BRISTOL-MYERS SQUIBB COMPANY-14348981

PATIENT
  Age: 69 Year
  Sex: Male

DRUGS (4)
  1. BLINDED: IPILIMUMAB [Suspect]
     Indication: LUNG NEOPLASM MALIGNANT
     Dosage: INITIAL DOSE : 01JUN08;CYCLE 2:23JUN08;CYCLE 3:14JUL07;CYCLE 4:08AUG08; INTERRUPTED ON 28AUG08
     Route: 042
     Dates: start: 20080828, end: 20080828
  2. PACLITAXEL [Suspect]
     Indication: LUNG NEOPLASM MALIGNANT
     Dosage: INITIAL DOSE : 01JUN08;CYCLE 2:23JUN08;CYCLE 3:14JUL07;CYCLE 4:08AUG08;INTERRUPTED ON 28AUG08
     Route: 042
     Dates: start: 20080828, end: 20080828
  3. CARBOPLATIN [Suspect]
     Indication: LUNG NEOPLASM MALIGNANT
     Dosage: INITIAL DOSE : 01JUN08;CYCLE 2:23JUN08;CYCLE 3:14JUL07;CYCLE 4:08AUG08; INTERRUPTED ON 28AUG08
     Route: 042
     Dates: start: 20080828, end: 20080828
  4. BLINDED: PLACEBO [Suspect]
     Indication: LUNG NEOPLASM MALIGNANT
     Dosage: INITIAL DOSE : 01JUN08;CYCLE 2:23JUN08;CYCLE 3:14JUL07;CYCLE 4:08AUG08; INTERRUPTED ON 28AUG08
     Route: 042
     Dates: start: 20080828, end: 20080828

REACTIONS (4)
  - DIARRHOEA [None]
  - FATIGUE [None]
  - PYREXIA [None]
  - SUDDEN CARDIAC DEATH [None]
